FAERS Safety Report 24895895 (Version 1)
Quarter: 2025Q1

REPORT INFORMATION
  Report Type: Spontaneous
  Country: US (occurrence: US)
  Receive Date: 20250128
  Receipt Date: 20250128
  Transmission Date: 20250409
  Serious: No
  Sender: UPSHER SMITH LABORATORIES
  Company Number: US-UPSHER-SMITH LABORATORIES, LLC-2024USL00131

PATIENT
  Sex: Female

DRUGS (3)
  1. ISOTRETINOIN [Suspect]
     Active Substance: ISOTRETINOIN
     Indication: Product used for unknown indication
  2. ISOTRETINOIN [Suspect]
     Active Substance: ISOTRETINOIN
  3. ISOTRETINOIN [Suspect]
     Active Substance: ISOTRETINOIN

REACTIONS (18)
  - Acne [Unknown]
  - Scar [Unknown]
  - Skin exfoliation [Unknown]
  - Psoriasis [Unknown]
  - Skin fibrosis [Unknown]
  - Skin discolouration [Unknown]
  - Acne cystic [Unknown]
  - Post inflammatory pigmentation change [Unknown]
  - Alopecia [Unknown]
  - Dry skin [Unknown]
  - Rash [Unknown]
  - Skin hyperpigmentation [Unknown]
  - Seborrhoeic dermatitis [Recovering/Resolving]
  - Pruritus [Unknown]
  - Cheilitis [Unknown]
  - Erythema [Unknown]
  - Skin hypopigmentation [Unknown]
  - Unevaluable event [Unknown]
